FAERS Safety Report 19287029 (Version 1)
Quarter: 2021Q2

REPORT INFORMATION
  Report Type: Spontaneous
  Country: JP (occurrence: JP)
  Receive Date: 20210521
  Receipt Date: 20210521
  Transmission Date: 20210717
  Serious: Yes (Death, Hospitalization, Other)
  Sender: FDA-Public Use
  Company Number: JP-EXELIXIS-CABO-21039289

PATIENT
  Age: 70 Year
  Sex: Male

DRUGS (6)
  1. AMITIZA [Suspect]
     Active Substance: LUBIPROSTONE
     Dosage: UNK
     Route: 048
  2. LAXOBERON [Suspect]
     Active Substance: SODIUM PICOSULFATE
     Indication: CONSTIPATION
     Dosage: UNK
     Route: 048
  3. LAXOBERON [Suspect]
     Active Substance: SODIUM PICOSULFATE
     Dosage: UNK
     Route: 048
  4. AMITIZA [Suspect]
     Active Substance: LUBIPROSTONE
     Indication: CONSTIPATION
     Dosage: UNK
     Route: 048
  5. CORTICOSTEROIDS [Suspect]
     Active Substance: CORTICOSTEROID NOS
     Indication: PRODUCT USED FOR UNKNOWN INDICATION
     Dosage: UNK
     Route: 065
  6. CABOMETYX [Suspect]
     Active Substance: CABOZANTINIB S-MALATE
     Indication: CLEAR CELL RENAL CELL CARCINOMA
     Dosage: 40 MG, QD
     Route: 048
     Dates: start: 20210309, end: 20210329

REACTIONS (3)
  - Cytomegalovirus infection [Fatal]
  - Stomatitis [Recovering/Resolving]
  - Diarrhoea [Recovered/Resolved]

NARRATIVE: CASE EVENT DATE: 20210329
